FAERS Safety Report 20517277 (Version 1)
Quarter: 2022Q1

REPORT INFORMATION
  Report Type: Spontaneous
  Country: FR (occurrence: FR)
  Receive Date: 20220225
  Receipt Date: 20220225
  Transmission Date: 20220423
  Serious: Yes (Life-Threatening, Congenital Anomaly, Other)
  Sender: FDA-Public Use
  Company Number: FR-ABBVIE-22K-056-4292238-00

PATIENT
  Sex: Male

DRUGS (4)
  1. VALPROATE SODIUM [Suspect]
     Active Substance: VALPROATE SODIUM
     Indication: Maternal exposure timing unspecified
     Route: 064
  2. FOLIC ACID [Concomitant]
     Active Substance: FOLIC ACID
     Indication: Maternal exposure timing unspecified
  3. VITAMIN K [Concomitant]
     Active Substance: PHYTONADIONE
     Indication: Maternal exposure timing unspecified
  4. PROBIOTICS NOS [Concomitant]
     Active Substance: PROBIOTICS NOS
     Indication: Maternal exposure timing unspecified

REACTIONS (41)
  - Foetal disorder [Unknown]
  - Cerebral ventricle dilatation [Unknown]
  - Hypotonia neonatal [Unknown]
  - Congenital nose malformation [Unknown]
  - Oropharyngeal discomfort [Unknown]
  - Autism spectrum disorder [Unknown]
  - Cardiac murmur [Unknown]
  - Cerebral atrophy [Unknown]
  - Joint laxity [Unknown]
  - Hypertelorism [Unknown]
  - Foot deformity [Unknown]
  - Echopraxia [Unknown]
  - Motor developmental delay [Unknown]
  - Echolalia [Unknown]
  - Psychomotor retardation [Unknown]
  - Talipes [Unknown]
  - Mitral valve thickening [Unknown]
  - Ventricular extrasystoles [Unknown]
  - Educational problem [Unknown]
  - Cognitive disorder [Unknown]
  - Amblyopia congenital [Unknown]
  - Otitis media [Unknown]
  - Congenital myopia [Unknown]
  - Retrognathia [Unknown]
  - Hypertrophy [Unknown]
  - Hypoglycaemia neonatal [Unknown]
  - Retinal anomaly congenital [Unknown]
  - Growth retardation [Unknown]
  - Developmental delay [Unknown]
  - Ear disorder [Unknown]
  - Speech disorder developmental [Unknown]
  - Congenital genital malformation [Unknown]
  - Cryptorchism [Unknown]
  - Micropenis [Unknown]
  - Dysmorphism [Unknown]
  - Limb malformation [Unknown]
  - Eating disorder [Unknown]
  - Arthropathy [Unknown]
  - Knee deformity [Unknown]
  - Foetal growth restriction [Unknown]
  - Foetal exposure during pregnancy [Unknown]

NARRATIVE: CASE EVENT DATE: 19981001
